FAERS Safety Report 23432757 (Version 1)
Quarter: 2024Q1

REPORT INFORMATION
  Report Type: Spontaneous
  Country: None (occurrence: FR)
  Receive Date: 20240123
  Receipt Date: 20240123
  Transmission Date: 20240410
  Serious: Yes (Other)
  Sender: FDA-Public Use
  Company Number: FR-B.Braun Medical Inc.-2151852

PATIENT
  Age: 46 Year
  Sex: Male
  Weight: 79 kg

DRUGS (3)
  1. HEPARIN SODIUM IN DEXTROSE [Suspect]
     Active Substance: HEPARIN SODIUM
     Indication: Angiocardiogram
     Dates: start: 20230921
  2. VERAPAMIL HYDROCHLORIDE [Suspect]
     Active Substance: VERAPAMIL HYDROCHLORIDE
  3. IODIXANOL [Suspect]
     Active Substance: IODIXANOL

REACTIONS (3)
  - Hypotension [None]
  - Tachycardia [None]
  - Throat irritation [None]
